FAERS Safety Report 9460883 (Version 1)
Quarter: 2013Q3

REPORT INFORMATION
  Report Type: Spontaneous
  Country: CA (occurrence: CA)
  Receive Date: 20130816
  Receipt Date: 20130816
  Transmission Date: 20140515
  Serious: Yes (Hospitalization)
  Sender: FDA-Public Use
  Company Number: CA-ROCHE-1261899

PATIENT
  Age: 71 Year
  Sex: Male
  Weight: 51 kg

DRUGS (34)
  1. NAPROXEN [Suspect]
     Indication: PRODUCT USED FOR UNKNOWN INDICATION
     Route: 048
  2. MORPHINE [Suspect]
     Indication: PRODUCT USED FOR UNKNOWN INDICATION
     Dosage: AS REQUIRED
     Route: 058
  3. MORPHINE [Suspect]
     Dosage: AS REQUIRED
     Route: 048
  4. MORPHINE [Suspect]
     Dosage: AS REQUIRED
     Route: 048
  5. ALMAGEL [Concomitant]
     Route: 048
  6. ARANESP [Concomitant]
     Route: 058
  7. ASA [Concomitant]
     Route: 048
  8. CANESTEN [Concomitant]
     Route: 061
  9. COLACE [Concomitant]
     Route: 048
  10. DIMENHYDRINATE [Concomitant]
     Route: 048
  11. DOMPERIDONE [Concomitant]
     Route: 048
  12. GRAVOL [Concomitant]
     Route: 048
  13. HEPARIN [Concomitant]
     Route: 051
  14. K-DUR [Concomitant]
     Route: 048
  15. LACTULOSE [Concomitant]
     Route: 048
  16. LASIX [Concomitant]
     Route: 042
  17. MAXERAN [Concomitant]
     Route: 048
  18. METOCLOPRAMIDE [Concomitant]
     Route: 042
  19. MINERAL OIL [Concomitant]
     Route: 054
  20. MORPHINE SR [Concomitant]
     Route: 048
  21. NORMAL SALINE [Concomitant]
     Route: 042
  22. OMEPRAZOLE [Concomitant]
     Route: 048
  23. PACKED RED BLOOD CELLS [Concomitant]
     Route: 042
  24. PAMIDRONATE DISODIUM [Concomitant]
     Route: 042
  25. PAROXETINE [Concomitant]
     Route: 048
  26. PERCOCET [Concomitant]
     Route: 048
  27. RABEPRAZOLE [Concomitant]
     Route: 048
  28. SENOKOT [Concomitant]
     Route: 048
  29. SODIUM CHLORIDE [Concomitant]
     Route: 042
  30. STEMETIL [Concomitant]
     Route: 042
  31. TRANSDERM-V [Concomitant]
     Route: 062
  32. TYLENOL WITH CODEINE #3 (UNITED STATES) [Concomitant]
     Route: 048
  33. ZOFRAN [Concomitant]
     Route: 048
  34. ZOPICLONE [Concomitant]
     Route: 048

REACTIONS (11)
  - Blood creatinine increased [Recovered/Resolved]
  - Chills [Recovered/Resolved]
  - Cough [Recovered/Resolved]
  - Haematocrit decreased [Recovered/Resolved]
  - Haemoglobin decreased [Recovered/Resolved]
  - Intestinal obstruction [Recovered/Resolved]
  - Lobar pneumonia [Recovered/Resolved]
  - Nausea [Recovered/Resolved]
  - Red blood cell count decreased [Recovered/Resolved]
  - Vomiting [Recovered/Resolved]
  - Pyrexia [Recovered/Resolved]
